FAERS Safety Report 20575235 (Version 1)
Quarter: 2022Q1

REPORT INFORMATION
  Report Type: Spontaneous
  Country: CN (occurrence: CN)
  Receive Date: 20220310
  Receipt Date: 20220310
  Transmission Date: 20220424
  Serious: Yes (Hospitalization)
  Sender: FDA-Public Use
  Company Number: CN-BAYER-2022A035205

PATIENT
  Age: 91 Year
  Sex: Male
  Weight: 54 kg

DRUGS (3)
  1. XARELTO [Suspect]
     Active Substance: RIVAROXABAN
     Indication: Anticoagulant therapy
     Dosage: 15 MG, QD
     Route: 048
     Dates: start: 20211123, end: 20211231
  2. XARELTO [Suspect]
     Active Substance: RIVAROXABAN
     Indication: Deep vein thrombosis
     Route: 048
  3. CILOSTAZOL [Suspect]
     Active Substance: CILOSTAZOL
     Indication: Antiplatelet therapy
     Dosage: 100 MG, QD
     Route: 048
     Dates: start: 20211123, end: 20220104

REACTIONS (5)
  - Gastrointestinal haemorrhage [Recovering/Resolving]
  - Chest discomfort [Unknown]
  - Tachypnoea [Unknown]
  - Inappropriate schedule of product administration [Unknown]
  - Product prescribing issue [Unknown]

NARRATIVE: CASE EVENT DATE: 20211123
